FAERS Safety Report 7306779-3 (Version None)
Quarter: 2011Q1

REPORT INFORMATION
  Report Type: 
  Country: None (occurrence: None)
  Receive Date: 20110222
  Receipt Date: 20110208
  Transmission Date: 20110831
  Serious: Yes (Other)
  Sender: FDA-Public Use
  Company Number: US-MYLANLABS-2011S1002926

PATIENT
  Age: 23 Year

DRUGS (1)
  1. VALPROIC ACID [Suspect]
     Indication: RETINITIS PIGMENTOSA
     Route: 065

REACTIONS (1)
  - VISUAL FIELD DEFECT [None]
